FAERS Safety Report 15997629 (Version 4)
Quarter: 2021Q3

REPORT INFORMATION
  Report Type: Spontaneous
  Country: US (occurrence: US)
  Receive Date: 20190222
  Receipt Date: 20210726
  Transmission Date: 20211014
  Serious: Yes (Other)
  Sender: FDA-Public Use
  Company Number: US-ASTRAZENECA-2018SF21584

PATIENT
  Age: 24827 Day
  Sex: Female
  Weight: 96.6 kg

DRUGS (18)
  1. PRILOSEC [Suspect]
     Active Substance: OMEPRAZOLE MAGNESIUM
     Indication: GASTROOESOPHAGEAL REFLUX DISEASE
     Route: 048
     Dates: start: 20050101, end: 20171231
  2. LORAZEPAM. [Concomitant]
     Active Substance: LORAZEPAM
  3. MELATONIN [Concomitant]
     Active Substance: MELATONIN
  4. IBUPROFEN. [Concomitant]
     Active Substance: IBUPROFEN
  5. MECLIZINE [Concomitant]
     Active Substance: MECLIZINE HYDROCHLORIDE
  6. NASONEX [Concomitant]
     Active Substance: MOMETASONE FUROATE
  7. ASPIRIN. [Concomitant]
     Active Substance: ASPIRIN
  8. PRILOSEC [Suspect]
     Active Substance: OMEPRAZOLE MAGNESIUM
     Indication: GASTROOESOPHAGEAL REFLUX DISEASE
     Route: 048
     Dates: start: 20110210, end: 20110224
  9. TRIAMTERENE. [Concomitant]
     Active Substance: TRIAMTERENE
  10. AMLODIPINE [Concomitant]
     Active Substance: AMLODIPINE BESYLATE
  11. PRILOSEC [Suspect]
     Active Substance: OMEPRAZOLE MAGNESIUM
     Indication: GASTROOESOPHAGEAL REFLUX DISEASE
     Dosage: GENERIC
     Route: 065
     Dates: start: 20120309
  12. NORCO [Concomitant]
     Active Substance: ACETAMINOPHEN\HYDROCODONE BITARTRATE
  13. PRILOSEC [Suspect]
     Active Substance: OMEPRAZOLE MAGNESIUM
     Indication: GASTROOESOPHAGEAL REFLUX DISEASE
     Route: 048
     Dates: start: 20120309, end: 20180823
  14. VITAMIN C [Concomitant]
     Active Substance: ASCORBIC ACID
  15. PROTONIX [Suspect]
     Active Substance: PANTOPRAZOLE SODIUM
     Route: 065
     Dates: start: 20050101, end: 20171231
  16. PROAIR HFA [Concomitant]
     Active Substance: ALBUTEROL SULFATE
  17. ONDANSETRON [Concomitant]
     Active Substance: ONDANSETRON
  18. PRILOSEC [Suspect]
     Active Substance: OMEPRAZOLE MAGNESIUM
     Indication: GASTROOESOPHAGEAL REFLUX DISEASE
     Route: 048
     Dates: start: 20110210, end: 20110224

REACTIONS (3)
  - Renal injury [Unknown]
  - Chronic kidney disease [Not Recovered/Not Resolved]
  - Acute kidney injury [Not Recovered/Not Resolved]

NARRATIVE: CASE EVENT DATE: 20170320
